FAERS Safety Report 22242554 (Version 1)
Quarter: 2023Q2

REPORT INFORMATION
  Report Type: Spontaneous
  Country: US (occurrence: None)
  Receive Date: 20230420
  Receipt Date: 20230420
  Transmission Date: 20230721
  Serious: No
  Sender: FDA-Public Use
  Company Number: None

PATIENT
  Sex: Male

DRUGS (1)
  1. CIMZIA [Suspect]
     Active Substance: CERTOLIZUMAB PEGOL
     Indication: Rheumatoid arthritis
     Dosage: 400MG EVERY 4 WEEKS UNDER THE SKIN?
     Route: 058
     Dates: start: 202105

REACTIONS (2)
  - Therapeutic response shortened [None]
  - Pain in extremity [None]
